FAERS Safety Report 7277447-1 (Version None)
Quarter: 2011Q1

REPORT INFORMATION
  Report Type: 
  Country: None (occurrence: None)
  Receive Date: 20110207
  Receipt Date: 20110125
  Transmission Date: 20110831
  Serious: Yes (Other)
  Sender: FDA-Public Use
  Company Number: ES-ELI_LILLY_AND_COMPANY-ES201101006161

PATIENT
  Sex: Female
  Weight: 51 kg

DRUGS (7)
  1. LEXATIN [Concomitant]
     Indication: ANXIETY
     Dosage: UNK, DAILY (1/D)
     Route: 048
  2. EZETROL [Concomitant]
     Indication: HYPERCHOLESTEROLAEMIA
     Dosage: UNK, DAILY (1/D)
     Route: 048
  3. CALCIO [Concomitant]
     Indication: MINERAL SUPPLEMENTATION
     Route: 048
  4. FORTEO [Suspect]
     Indication: OSTEOPOROSIS
     Dosage: 20 UG, DAILY (1/D)
     Route: 058
     Dates: start: 20100413
  5. NOLOTIL [Concomitant]
     Indication: PAIN
     Route: 048
  6. PARACETAMOL [Concomitant]
     Indication: PAIN
     Route: 048
  7. NEXIUM [Concomitant]
     Indication: PROPHYLAXIS AGAINST GASTROINTESTINAL ULCER
     Dosage: 40 MG, DAILY (1/D)
     Route: 048

REACTIONS (1)
  - WEIGHT DECREASED [None]
